FAERS Safety Report 6780047-0 (Version None)
Quarter: 2010Q2

REPORT INFORMATION
  Report Type: 
  Country: None (occurrence: None)
  Receive Date: 20100618
  Receipt Date: 20100128
  Transmission Date: 20101027
  Serious: Yes (Other)
  Sender: FDA-Public Use
  Company Number: US-PFIZER INC-2010012350

PATIENT
  Sex: Male

DRUGS (2)
  1. VIAGRA [Suspect]
  2. DETROL LA [Suspect]

REACTIONS (1)
  - VISUAL ACUITY REDUCED [None]
